FAERS Safety Report 21626797 (Version 1)
Quarter: 2022Q4

REPORT INFORMATION
  Report Type: Spontaneous
  Country: US (occurrence: None)
  Receive Date: 20221122
  Receipt Date: 20221122
  Transmission Date: 20230113
  Serious: No
  Sender: FDA-Public Use
  Company Number: US-Noden Pharma DAC-NOD202206-000011

PATIENT
  Age: 62 Year
  Sex: Female
  Weight: 83.91 kg

DRUGS (3)
  1. ALISKIREN [Suspect]
     Active Substance: ALISKIREN
     Indication: Hypertension
  2. PANTOPRAZOLE [Concomitant]
     Active Substance: PANTOPRAZOLE
     Indication: Product used for unknown indication
     Dosage: UNKNOWN
  3. LORATADINE [Concomitant]
     Active Substance: LORATADINE
     Indication: Seasonal allergy
     Dosage: UNKNOWN

REACTIONS (6)
  - Chest pain [Unknown]
  - Eye pain [Unknown]
  - Headache [Unknown]
  - Arthralgia [Unknown]
  - Arthralgia [Unknown]
  - Dyspepsia [Unknown]

NARRATIVE: CASE EVENT DATE: 20220613
